FAERS Safety Report 4460627-8 (Version None)
Quarter: 2004Q3

REPORT INFORMATION
  Report Type: 
  Country: None (occurrence: None)
  Receive Date: 20040928
  Receipt Date: 20040707
  Transmission Date: 20050211
  Serious: No
  Sender: FDA-Public Use
  Company Number: US-GLAXOSMITHKLINE-A0517254A

PATIENT
  Age: 69 Year
  Sex: Female

DRUGS (13)
  1. ADVAIR DISKUS 100/50 [Suspect]
     Indication: EMPHYSEMA
     Dosage: 1PUFF TWICE PER DAY
     Route: 055
     Dates: start: 20030101
  2. COMBIVENT [Concomitant]
  3. SINGULAIR [Concomitant]
  4. PROTONIX [Concomitant]
  5. ASPIRIN [Concomitant]
  6. CARDIZEM [Concomitant]
  7. DIETARY SUPPLEMENT [Concomitant]
  8. LIPITOR [Concomitant]
  9. LEVAQUIN [Concomitant]
  10. CALCIUM/MAGNESIUM [Concomitant]
  11. PREDNISONE [Concomitant]
  12. CENTRUM [Concomitant]
  13. VITAMIN C [Concomitant]

REACTIONS (1)
  - BRONCHITIS CHRONIC [None]
